FAERS Safety Report 9704842 (Version 1)
Quarter: 2013Q4

REPORT INFORMATION
  Report Type: Spontaneous
  Country: JP (occurrence: JP)
  Receive Date: 20131122
  Receipt Date: 20131122
  Transmission Date: 20140711
  Serious: Yes (Other)
  Sender: FDA-Public Use
  Company Number: JP-BRISTOL-MYERS SQUIBB COMPANY-19834951

PATIENT
  Sex: 0

DRUGS (2)
  1. ORENCIA FOR INJ [Suspect]
     Indication: RHEUMATOID ARTHRITIS
     Route: 042
  2. VASOLAN [Concomitant]
     Route: 048

REACTIONS (1)
  - Supraventricular tachycardia [Unknown]
